FAERS Safety Report 19297633 (Version 1)
Quarter: 2021Q2

REPORT INFORMATION
  Report Type: Spontaneous
  Country: ZA (occurrence: ZA)
  Receive Date: 20210525
  Receipt Date: 20210525
  Transmission Date: 20210717
  Serious: Yes (Hospitalization, Other)
  Sender: FDA-Public Use
  Company Number: ZA-LUPIN PHARMACEUTICALS INC.-2021-07388

PATIENT
  Sex: Female

DRUGS (6)
  1. XARELTO [Suspect]
     Active Substance: RIVAROXABAN
     Indication: ANTICOAGULANT THERAPY
     Dosage: 20 MILLIGRAM
     Route: 048
  2. SPIRACTIN [PIMECLONE HYDROCHLORIDE] [Suspect]
     Active Substance: PIMECLONE HYDROCHLORIDE
     Indication: DIURETIC THERAPY
     Dosage: 25 MILLIGRAM
     Route: 048
  3. LISORETIC 20/12,5 [Suspect]
     Active Substance: HYDROCHLOROTHIAZIDE\LISINOPRIL
     Indication: HYPERTENSION
     Dosage: UNK (20/12.5 MG)
     Route: 048
  4. VUSOR [Suspect]
     Active Substance: ROSUVASTATIN CALCIUM
     Indication: BLOOD CHOLESTEROL ABNORMAL
     Dosage: 10 MILLIGRAM
     Route: 048
  5. TRUSTAN [Suspect]
     Active Substance: ESOMEPRAZOLE
     Indication: ULCER
     Dosage: 40 MILLIGRAM
     Route: 048
  6. CARLOC [Suspect]
     Active Substance: CARVEDILOL
     Indication: HYPERTENSION
     Dosage: 6.25 MILLIGRAM
     Route: 048

REACTIONS (2)
  - Pulmonary thrombosis [Recovering/Resolving]
  - Oxygen saturation decreased [Recovering/Resolving]

NARRATIVE: CASE EVENT DATE: 2021
